FAERS Safety Report 9833440 (Version 1)
Quarter: 2014Q1

REPORT INFORMATION
  Report Type: Report from Study
  Country: AU (occurrence: AU)
  Receive Date: 20140122
  Receipt Date: 20140122
  Transmission Date: 20141002
  Serious: Yes (Death)
  Sender: FDA-Public Use
  Company Number: AU-ROCHE-1336161

PATIENT
  Age: 30 Year
  Sex: Female

DRUGS (6)
  1. DIAZEPAM [Suspect]
     Indication: PRODUCT USED FOR UNKNOWN INDICATION
     Route: 065
  2. CODEINE [Interacting]
     Indication: PRODUCT USED FOR UNKNOWN INDICATION
     Route: 065
  3. IBUPROFEN [Interacting]
     Indication: PRODUCT USED FOR UNKNOWN INDICATION
     Route: 065
  4. PARACETAMOL [Interacting]
     Indication: PRODUCT USED FOR UNKNOWN INDICATION
     Route: 065
  5. PROPANOLOL [Interacting]
     Indication: PRODUCT USED FOR UNKNOWN INDICATION
     Route: 065
  6. DULOXETINE [Interacting]
     Indication: PRODUCT USED FOR UNKNOWN INDICATION
     Route: 065

REACTIONS (5)
  - Toxicity to various agents [Fatal]
  - Drug interaction [Fatal]
  - Pulmonary oedema [Fatal]
  - Contusion [Fatal]
  - Muscle contusion [Fatal]
